FAERS Safety Report 21755316 (Version 1)
Quarter: 2022Q4

REPORT INFORMATION
  Report Type: Spontaneous
  Country: PT (occurrence: None)
  Receive Date: 20221220
  Receipt Date: 20221220
  Transmission Date: 20230113
  Serious: Yes (Other)
  Sender: FDA-Public Use
  Company Number: PT-Unichem Pharmaceuticals (USA) Inc-UCM202212-001321

PATIENT
  Age: 66 Year
  Sex: Female

DRUGS (1)
  1. QUETIAPINE [Suspect]
     Active Substance: QUETIAPINE
     Indication: Major depression

REACTIONS (2)
  - Withdrawal catatonia [Recovering/Resolving]
  - Oedema peripheral [Recovering/Resolving]
